FAERS Safety Report 8419695-0 (Version None)
Quarter: 2012Q2

REPORT INFORMATION
  Report Type: 
  Country: None (occurrence: None)
  Receive Date: 20120604
  Receipt Date: 20120604
  Transmission Date: 20120825
  Serious: Yes (Other)
  Sender: FDA-Public Use
  Company Number: None

PATIENT
  Age: 40 Year
  Sex: Female
  Weight: 55.7924 kg

DRUGS (1)
  1. AZITHROMYCIN [Suspect]
     Indication: HAEMORRHAGE
     Dosage: 2 TABLETS DAY 1  : 1 TABLET DAY 2-5
     Dates: start: 20120423, end: 20120428

REACTIONS (3)
  - RASH [None]
  - ONYCHOMADESIS [None]
  - BLOOD BLISTER [None]
